FAERS Safety Report 7241008-0 (Version None)
Quarter: 2011Q1

REPORT INFORMATION
  Report Type: 
  Country: None (occurrence: None)
  Receive Date: 20110120
  Receipt Date: 20110120
  Transmission Date: 20110831
  Serious: No
  Sender: FDA-Public Use
  Company Number: None

PATIENT
  Sex: Female
  Weight: 61.4 kg

DRUGS (1)
  1. METHOTREXATE [Suspect]
     Indication: RHEUMATOID ARTHRITIS
     Dosage: 4 TABLETS ONCE A WEEK
     Dates: start: 20110101

REACTIONS (4)
  - UMBILICAL HAEMORRHAGE [None]
  - ABDOMINAL PAIN UPPER [None]
  - BLISTER [None]
  - FEELING ABNORMAL [None]
